FAERS Safety Report 9748190 (Version 1)
Quarter: 2013Q4

REPORT INFORMATION
  Report Type: Other
  Country: GB (occurrence: GB)
  Receive Date: 20131212
  Receipt Date: 20131212
  Transmission Date: 20140711
  Serious: Yes (Disabling)
  Sender: FDA-Public Use
  Company Number: GB-TARO PHARMACEUTICALS U.S.A., INC-2013SUN05146

PATIENT
  Age: 92 Year
  Sex: Male
  Weight: 70 kg

DRUGS (7)
  1. WARFARIN [Suspect]
     Indication: ATRIAL FIBRILLATION
     Dosage: UNK
     Route: 048
     Dates: start: 201305, end: 201310
  2. WARFARIN [Suspect]
     Dosage: UNK
  3. DIGOXIN [Concomitant]
     Dosage: 62.5 MCG, UNK
     Route: 048
  4. FUROSEMIDE [Concomitant]
     Dosage: 40 MG, BID
     Route: 048
  5. OMEPRAZOLE [Concomitant]
     Dosage: 20 MG, OD
     Route: 048
  6. RAMIPRIL [Concomitant]
     Dosage: 5 MG, OD
     Route: 048
  7. SIMVASTATIN [Concomitant]
     Dosage: 40 MG, OD
     Route: 048

REACTIONS (2)
  - Insomnia [Recovered/Resolved]
  - Pruritus [Not Recovered/Not Resolved]
